FAERS Safety Report 7603076-3 (Version None)
Quarter: 2011Q3

REPORT INFORMATION
  Report Type: 
  Country: None (occurrence: None)
  Receive Date: 20110712
  Receipt Date: 20110609
  Transmission Date: 20111222
  Serious: Yes (Hospitalization, Other)
  Sender: FDA-Public Use
  Company Number: BR-BRISTOL-MYERS SQUIBB COMPANY-15891880

PATIENT
  Age: 54 Year
  Sex: Female

DRUGS (1)
  1. GLIFAGE XR [Suspect]
     Indication: DIABETES MELLITUS
     Dosage: GLIFAGE XR 500MG
     Route: 048
     Dates: start: 20101201

REACTIONS (4)
  - URINARY TRACT INFECTION [None]
  - DIZZINESS [None]
  - MULTIPLE SCLEROSIS [None]
  - HYPERTENSION [None]
